FAERS Safety Report 9581502 (Version 2)
Quarter: 2013Q4

REPORT INFORMATION
  Report Type: Report from Study
  Country: MX (occurrence: MX)
  Receive Date: 20131002
  Receipt Date: 20131022
  Transmission Date: 20140711
  Serious: Yes (Other)
  Sender: FDA-Public Use
  Company Number: PHHY2013MX109363

PATIENT
  Age: 61 Year
  Sex: Female

DRUGS (2)
  1. EXFORGE [Suspect]
     Indication: HYPERTENSION
     Dosage: 1 DF (160 MG VALS AND 5 MG AMLO), DAILY
     Route: 048
     Dates: start: 201303
  2. EXFORGE [Suspect]
     Dosage: 1 DF (320 MG VALS AND 5 MG AMLO), DAILY
     Route: 048
     Dates: start: 201303

REACTIONS (3)
  - Kidney infection [Unknown]
  - Concomitant disease aggravated [Unknown]
  - Drug ineffective [Not Recovered/Not Resolved]
